FAERS Safety Report 7897733-1 (Version None)
Quarter: 2011Q4

REPORT INFORMATION
  Report Type: 
  Country: None (occurrence: None)
  Receive Date: 20111107
  Receipt Date: 20111101
  Transmission Date: 20120403
  Serious: Yes (Hospitalization)
  Sender: FDA-Public Use
  Company Number: DK-PFIZER INC-2011267724

PATIENT
  Age: 62 Year
  Sex: Male

DRUGS (1)
  1. SUNITINIB MALATE [Suspect]
     Indication: METASTATIC RENAL CELL CARCINOMA
     Dosage: 50 MG, 1X/DAY IN 22 DYS THEN PAUSE IN 12 DAYS
     Dates: start: 20100223, end: 20100504

REACTIONS (3)
  - FATIGUE [None]
  - DEHYDRATION [None]
  - NAUSEA [None]
